FAERS Safety Report 6410980-0 (Version None)
Quarter: 2009Q4

REPORT INFORMATION
  Report Type: 
  Country: None (occurrence: None)
  Receive Date: 20091020
  Receipt Date: 20091020
  Transmission Date: 20100525
  Serious: Yes (Other)
  Sender: FDA-Public Use
  Company Number: None

PATIENT
  Sex: Female
  Weight: 77.1115 kg

DRUGS (2)
  1. SIMVASTATIN [Suspect]
     Indication: HYPERCHOLESTEROLAEMIA
     Dosage: 10 MG DAILY P.O.
     Route: 048
     Dates: start: 20070101, end: 20090101
  2. LISINOPRIL [Concomitant]

REACTIONS (5)
  - FAECAL INCONTINENCE [None]
  - MEMORY IMPAIRMENT [None]
  - MENOPAUSE [None]
  - MIGRAINE [None]
  - THINKING ABNORMAL [None]
